FAERS Safety Report 23037842 (Version 1)
Quarter: 2023Q4

REPORT INFORMATION
  Report Type: Spontaneous
  Country: JP (occurrence: JP)
  Receive Date: 20231006
  Receipt Date: 20231006
  Transmission Date: 20240110
  Serious: Yes (Other)
  Sender: FDA-Public Use
  Company Number: JP-Accord-382315

PATIENT
  Age: 56 Year
  Sex: Male

DRUGS (3)
  1. PEMETREXED [Suspect]
     Active Substance: PEMETREXED
     Indication: Lung adenocarcinoma stage IV
  2. PREDNISOLONE [Concomitant]
     Active Substance: PREDNISOLONE
     Indication: Linear IgA disease
  3. PREDNISOLONE [Concomitant]
     Active Substance: PREDNISOLONE

REACTIONS (2)
  - Linear IgA disease [Recovered/Resolved]
  - Skin toxicity [Recovered/Resolved]
